FAERS Safety Report 9867007 (Version 1)
Quarter: 2014Q1

REPORT INFORMATION
  Report Type: Spontaneous
  Country: US (occurrence: US)
  Receive Date: 20140204
  Receipt Date: 20140204
  Transmission Date: 20141002
  Serious: No
  Sender: FDA-Public Use
  Company Number: US-009507513-1401USA008845

PATIENT
  Sex: Female

DRUGS (1)
  1. NEXPLANON [Suspect]
     Dosage: 3 MONTHS
     Route: 059

REACTIONS (4)
  - Depression [Not Recovered/Not Resolved]
  - Suicidal ideation [Unknown]
  - Haemorrhage [Unknown]
  - Depressed mood [Not Recovered/Not Resolved]
